FAERS Safety Report 4579379-6 (Version None)
Quarter: 2005Q1

REPORT INFORMATION
  Report Type: 
  Country: None (occurrence: None)
  Receive Date: 20050209
  Receipt Date: 20050131
  Transmission Date: 20050727
  Serious: Yes (Hospitalization)
  Sender: FDA-Public Use
  Company Number: FABR-10947

PATIENT
  Age: 38 Year
  Sex: Male
  Weight: 65.1 kg

DRUGS (16)
  1. FABRAZYME [Suspect]
     Indication: FABRY'S DISEASE
     Dosage: 1 MG/KG Q2WKS IV
     Route: 042
     Dates: start: 20030901
  2. CELLCEPT [Concomitant]
  3. PROGRAF [Concomitant]
  4. VALCYTE [Concomitant]
  5. BACTRIM [Concomitant]
  6. NYSTATIN [Concomitant]
  7. MULTI-VITAMIN [Concomitant]
  8. ZANTAC [Concomitant]
  9. SENOKOT [Concomitant]
  10. LEXAPRO [Concomitant]
  11. NEURONTIN [Concomitant]
  12. ASPIRIN [Concomitant]
  13. FOSAMAX [Concomitant]
  14. AMBIEN [Concomitant]
  15. METHADONE [Concomitant]
  16. VICODIN [Concomitant]

REACTIONS (3)
  - DEAFNESS UNILATERAL [None]
  - RENAL FAILURE CHRONIC [None]
  - RENAL TRANSPLANT [None]
